FAERS Safety Report 22248854 (Version 3)
Quarter: 2023Q2

REPORT INFORMATION
  Report Type: Spontaneous
  Country: US (occurrence: US)
  Receive Date: 20230425
  Receipt Date: 20230502
  Transmission Date: 20230721
  Serious: Yes (Death, Hospitalization)
  Sender: FDA-Public Use
  Company Number: US-JNJFOC-20230438503

PATIENT
  Age: 13 Year
  Sex: Male

DRUGS (1)
  1. BENADRYL ALLERGY ULTRATAB [Suspect]
     Active Substance: DIPHENHYDRAMINE HYDROCHLORIDE
     Indication: Hallucination
     Dosage: 12 TO 14 PILLS
     Route: 065
     Dates: start: 202304

REACTIONS (3)
  - Intentional product misuse [Fatal]
  - Intentional overdose [Fatal]
  - Encephalopathy [Fatal]

NARRATIVE: CASE EVENT DATE: 20230401
